FAERS Safety Report 5898690-X (Version None)
Quarter: 2008Q3

REPORT INFORMATION
  Report Type: 
  Country: None (occurrence: None)
  Receive Date: 20080925
  Receipt Date: 20080404
  Transmission Date: 20090109
  Serious: No
  Sender: FDA-Public Use
  Company Number: A0722648A

PATIENT
  Sex: Female

DRUGS (1)
  1. WELLBUTRIN XL [Suspect]
     Indication: MENOPAUSE
     Route: 048

REACTIONS (1)
  - DRUG INTOLERANCE [None]
